FAERS Safety Report 17022916 (Version 1)
Quarter: 2019Q4

REPORT INFORMATION
  Report Type: Spontaneous
  Country: US (occurrence: US)
  Receive Date: 20191112
  Receipt Date: 20191112
  Transmission Date: 20200122
  Serious: Yes (Death, Life-Threatening, Hospitalization, Other)
  Sender: FDA-Public Use
  Company Number: US-FRESENIUS KABI-FK201912351

PATIENT
  Age: 66 Year
  Sex: Male
  Weight: 75.8 kg

DRUGS (7)
  1. ITACITINIB [Suspect]
     Active Substance: ITACITINIB
     Indication: ACUTE GRAFT VERSUS HOST DISEASE
     Dosage: INCB039110/PLACEBO (CODE NOT BROKEN)
     Route: 048
     Dates: start: 20181207, end: 20190610
  2. PREDNISONE. [Suspect]
     Active Substance: PREDNISONE
     Dosage: REGIMEN 2
     Route: 048
     Dates: start: 20190618, end: 20190624
  3. PREDNISONE. [Suspect]
     Active Substance: PREDNISONE
     Dosage: REGIMEN 3
     Route: 048
     Dates: start: 20190625
  4. VORICONAZOLE. [Concomitant]
     Active Substance: VORICONAZOLE
     Indication: PRODUCT USED FOR UNKNOWN INDICATION
     Dosage: UNKNOWN
     Route: 065
     Dates: start: 20190228
  5. CLINDAMYCIN. [Concomitant]
     Active Substance: CLINDAMYCIN
     Indication: PRODUCT USED FOR UNKNOWN INDICATION
     Dosage: UNKNOWN DOSE, POST PROCEDURAL (AFTER WISDOM TOOTH REMOVAL)
     Route: 065
     Dates: start: 20190625
  6. PREDNISONE. [Suspect]
     Active Substance: PREDNISONE
     Indication: ACUTE GRAFT VERSUS HOST DISEASE
     Route: 048
     Dates: start: 20181207, end: 20190618
  7. METHYLPREDNISOLONE (MANUFACTURER UNKNOWN) [Suspect]
     Active Substance: METHYLPREDNISOLONE
     Indication: ACUTE GRAFT VERSUS HOST DISEASE
     Dosage: REGIMEN 1
     Dates: start: 20181206

REACTIONS (2)
  - Sepsis [Fatal]
  - Pyrexia [Recovered/Resolved]

NARRATIVE: CASE EVENT DATE: 20190606
